FAERS Safety Report 5514552-1 (Version None)
Quarter: 2007Q4

REPORT INFORMATION
  Report Type: 
  Country: None (occurrence: None)
  Receive Date: 20071113
  Receipt Date: 20071105
  Transmission Date: 20080405
  Serious: Yes (Other)
  Sender: FDA-Public Use
  Company Number: A0694014A

PATIENT
  Age: 40 Year
  Sex: Female

DRUGS (1)
  1. PAXIL [Suspect]
     Indication: DRUG USE FOR UNKNOWN INDICATION
     Dosage: 20MG PER DAY
     Route: 048

REACTIONS (6)
  - ANXIETY [None]
  - CHOKING [None]
  - COUGH [None]
  - DYSPNOEA [None]
  - RESPIRATORY DISORDER [None]
  - TEMPERATURE INTOLERANCE [None]
